FAERS Safety Report 8043510-0 (Version None)
Quarter: 2012Q1

REPORT INFORMATION
  Report Type: 
  Country: None (occurrence: None)
  Receive Date: 20120112
  Receipt Date: 20120106
  Transmission Date: 20120608
  Serious: Yes (Death, Hospitalization, Other)
  Sender: FDA-Public Use
  Company Number: CZ-ELI_LILLY_AND_COMPANY-CZ201112002225

PATIENT
  Age: 59 Year
  Sex: Male

DRUGS (12)
  1. EUPHYLLIN                               /GFR/ [Concomitant]
     Indication: CHRONIC OBSTRUCTIVE PULMONARY DISEASE
  2. ATROVENT [Concomitant]
     Indication: CHRONIC OBSTRUCTIVE PULMONARY DISEASE
  3. DETRALEX [Concomitant]
  4. FOLIC ACID [Concomitant]
     Indication: SUPPLEMENTATION THERAPY
  5. DICLOFENAC [Concomitant]
  6. DEXAMETHASONE TAB [Concomitant]
  7. ALIMTA [Suspect]
     Indication: NON-SMALL CELL LUNG CANCER
     Dosage: 500 MG/M2, EVERY 21 DAYS
     Route: 042
     Dates: start: 20111114, end: 20111114
  8. FRAXIPARINE [Concomitant]
  9. VITAMIN B12                        /00056201/ [Concomitant]
     Indication: SUPPLEMENTATION THERAPY
  10. CISPLATIN [Concomitant]
     Indication: NON-SMALL CELL LUNG CANCER
  11. FORMOTEROL FUMARATE [Concomitant]
     Indication: CHRONIC OBSTRUCTIVE PULMONARY DISEASE
  12. METOCLOPRAMIDE                     /00041901/ [Concomitant]

REACTIONS (6)
  - ABDOMINAL ABSCESS [None]
  - COR PULMONALE [None]
  - RESPIRATORY ARREST [None]
  - GASTRIC ULCER HAEMORRHAGE [None]
  - PULMONARY EMBOLISM [None]
  - THROMBOCYTOPENIA [None]
